FAERS Safety Report 9770362 (Version 1)
Quarter: 2013Q4

REPORT INFORMATION
  Report Type: Spontaneous
  Country: US (occurrence: US)
  Receive Date: 20131218
  Receipt Date: 20131218
  Transmission Date: 20140711
  Serious: Yes (Hospitalization)
  Sender: FDA-Public Use
  Company Number: US-BRISTOL-MYERS SQUIBB COMPANY-19889971

PATIENT
  Age: 33 Year
  Sex: Male
  Weight: 135.14 kg

DRUGS (4)
  1. ABILIFY [Suspect]
     Dosage: DOSE WAS INCREASED TO 10MG?10MG FOR 2 MONTHS UNTIL SEP2013
     Dates: start: 2007
  2. PRISTIQ [Concomitant]
  3. LITHIUM [Concomitant]
  4. APRESOLINE [Concomitant]

REACTIONS (1)
  - Mental disorder [Unknown]
